FAERS Safety Report 6200338-1 (Version None)
Quarter: 2009Q2

REPORT INFORMATION
  Report Type: 
  Country: None (occurrence: None)
  Receive Date: 20090522
  Receipt Date: 20090514
  Transmission Date: 20091009
  Serious: Yes (Hospitalization)
  Sender: FDA-Public Use
  Company Number: PHHO2009US01257

PATIENT
  Sex: Male
  Weight: 68.5 kg

DRUGS (23)
  1. AVASTIN COMP-AVA+ [Suspect]
     Indication: NEUROENDOCRINE CARCINOMA
     Dosage: 15 MG/KG
     Dates: start: 20080611, end: 20090127
  2. AVASTIN COMP-AVA+ [Suspect]
     Dosage: 15 MG/KG
     Dates: end: 20090331
  3. RAD 666 RAD+TAB [Suspect]
     Indication: NEUROENDOCRINE CARCINOMA
     Dosage: 10 MG, DAILY
     Route: 048
     Dates: start: 20080701, end: 20090417
  4. NEXIUM [Concomitant]
     Indication: DYSPEPSIA
  5. PANGESTYME UL [Concomitant]
  6. LOPERAMIDE HYDROCHLORIDE [Concomitant]
     Indication: DIARRHOEA
  7. CENTRUM [Concomitant]
  8. DILTIAZEM [Concomitant]
  9. TERAZOSIN HCL [Concomitant]
  10. GAS-X [Concomitant]
     Indication: FLATULENCE
  11. COLESTIPOL HYDROCHLORIDE [Concomitant]
  12. TYLENOL [Concomitant]
     Indication: PAIN
  13. MEDROL [Concomitant]
  14. LEVAQUIN [Concomitant]
  15. CARDIZEM [Concomitant]
  16. COMPAZINE [Concomitant]
  17. CREON [Concomitant]
  18. CYCLOBENZAPRINE HCL [Concomitant]
     Indication: MUSCLE SPASMS
  19. GLYBURIDE [Concomitant]
     Indication: DIABETES MELLITUS
  20. HYDROCODONE BITARTRATE AND ACETAMINOPHEN [Concomitant]
     Indication: PAIN
  21. HYTRIN [Concomitant]
  22. ZOFRAN [Concomitant]
     Indication: PAIN
  23. BACTROBAN [Concomitant]

REACTIONS (26)
  - ABDOMINAL DISTENSION [None]
  - ABDOMINAL PAIN [None]
  - ANOREXIA [None]
  - BLOOD CREATININE INCREASED [None]
  - BLOOD UREA INCREASED [None]
  - CENTRAL VENOUS CATHETERISATION [None]
  - DEHYDRATION [None]
  - DIARRHOEA [None]
  - DIVERTICULUM [None]
  - ENTEROCOLITIS [None]
  - GALLBLADDER ENLARGEMENT [None]
  - GASTROINTESTINAL OEDEMA [None]
  - GASTROINTESTINAL SOUNDS ABNORMAL [None]
  - GASTROINTESTINAL TUBE INSERTION [None]
  - HYPOKALAEMIA [None]
  - ILEUS [None]
  - INTESTINAL DILATATION [None]
  - LUNG DISORDER [None]
  - MALNUTRITION [None]
  - NAUSEA [None]
  - OVERGROWTH BACTERIAL [None]
  - PLEURAL EFFUSION [None]
  - POSTOPERATIVE ADHESION [None]
  - SMALL INTESTINAL OBSTRUCTION [None]
  - SPONDYLOLYSIS [None]
  - VOMITING [None]
